FAERS Safety Report 6676931-9 (Version None)
Quarter: 2010Q2

REPORT INFORMATION
  Report Type: 
  Country: None (occurrence: None)
  Receive Date: 20100412
  Receipt Date: 20100331
  Transmission Date: 20101027
  Serious: Yes (Hospitalization)
  Sender: FDA-Public Use
  Company Number: FR-JNJFOC-20100402262

PATIENT
  Age: 19 Year
  Sex: Female

DRUGS (8)
  1. IXPRIM [Suspect]
     Indication: DRUG USE FOR UNKNOWN INDICATION
     Dosage: 2 IN 1 DAY
     Route: 048
  2. GAVISCON /01764701/ [Concomitant]
  3. NEXIUM [Concomitant]
  4. NORDETTE-21 [Concomitant]
  5. TIORFAN [Concomitant]
  6. SPASFON [Concomitant]
  7. OFLOCET [Concomitant]
  8. ROCEPHIN [Concomitant]

REACTIONS (3)
  - ABDOMINAL PAIN UPPER [None]
  - PANCREATITIS ACUTE [None]
  - VOMITING [None]
